FAERS Safety Report 19988376 (Version 3)
Quarter: 2021Q4

REPORT INFORMATION
  Report Type: Report from Study
  Country: US (occurrence: US)
  Receive Date: 20211022
  Receipt Date: 20211206
  Transmission Date: 20220303
  Serious: Yes (Other)
  Sender: FDA-Public Use
  Company Number: US-ABBVIE-21K-163-4097513-00

PATIENT
  Sex: Female

DRUGS (3)
  1. IMBRUVICA [Suspect]
     Active Substance: IBRUTINIB
     Indication: B-cell small lymphocytic lymphoma
     Route: 048
     Dates: start: 20210927
  2. PFIZER-BIONTECH COVID-19 VACCINE [Concomitant]
     Active Substance: TOZINAMERAN
     Indication: COVID-19 immunisation
     Route: 030
     Dates: start: 202107, end: 202107
  3. PFIZER-BIONTECH COVID-19 VACCINE [Concomitant]
     Active Substance: TOZINAMERAN
     Route: 030
     Dates: start: 202108, end: 202108

REACTIONS (10)
  - Peripheral vein occlusion [Unknown]
  - Somnolence [Unknown]
  - Hypotension [Unknown]
  - Faeces soft [Not Recovered/Not Resolved]
  - Therapeutic response unexpected [Recovering/Resolving]
  - Muscle spasms [Unknown]
  - Fatigue [Recovered/Resolved]
  - Increased tendency to bruise [Unknown]
  - Fatigue [Unknown]
  - Insomnia [Not Recovered/Not Resolved]

NARRATIVE: CASE EVENT DATE: 20210101
